FAERS Safety Report 22884442 (Version 2)
Quarter: 2024Q1

REPORT INFORMATION
  Report Type: Spontaneous
  Country: US (occurrence: US)
  Receive Date: 20230830
  Receipt Date: 20240119
  Transmission Date: 20240410
  Serious: Yes (Death, Hospitalization, Other)
  Sender: FDA-Public Use
  Company Number: US-AMGEN-USASP2023150527

PATIENT

DRUGS (4)
  1. INFLIXIMAB [Suspect]
     Active Substance: INFLIXIMAB
     Indication: Cardiac sarcoidosis
     Dosage: 5 MILLIGRAM PER KILOGRAM, Q6WK
     Route: 065
  2. INFLIXIMAB [Suspect]
     Active Substance: INFLIXIMAB
     Dosage: 6 MILLIGRAM PER KILOGRAM, Q7WK
     Route: 065
  3. INFLIXIMAB [Suspect]
     Active Substance: INFLIXIMAB
     Dosage: 7 MILLIGRAM PER KILOGRAM, Q7WK
     Route: 065
  4. PREDNISONE [Concomitant]
     Active Substance: PREDNISONE
     Indication: Cardiac sarcoidosis
     Dosage: UNK
     Route: 065

REACTIONS (15)
  - Infection [Fatal]
  - COVID-19 [Fatal]
  - Lupus-like syndrome [Unknown]
  - Skin cancer [Unknown]
  - Ventricular tachycardia [Unknown]
  - Cardiovascular disorder [Unknown]
  - Cardiac failure [Unknown]
  - Heart transplant [Unknown]
  - Unevaluable event [Unknown]
  - Drug effective for unapproved indication [Unknown]
  - Chest discomfort [Unknown]
  - Dermatitis allergic [Unknown]
  - Ejection fraction decreased [Unknown]
  - Off label use [Unknown]
  - Headache [Unknown]
